FAERS Safety Report 12293332 (Version 1)
Quarter: 2016Q2

REPORT INFORMATION
  Report Type: Spontaneous
  Country: US (occurrence: US)
  Receive Date: 20160421
  Receipt Date: 20160421
  Transmission Date: 20160815
  Serious: Yes (Disabling, Other)
  Sender: FDA-Public Use
  Company Number: US-TEVA-654677USA

PATIENT
  Age: 45 Year
  Sex: Male

DRUGS (7)
  1. PAMIDRONIC ACID [Suspect]
     Active Substance: PAMIDRONIC ACID
     Route: 065
  2. RISEDRONIC ACID [Suspect]
     Active Substance: RISEDRONIC ACID
     Route: 065
  3. ALENDRONIC ACID [Suspect]
     Active Substance: ALENDRONIC ACID
     Route: 065
  4. ETIDRONIC ACID [Suspect]
     Active Substance: ETIDRONIC ACID
     Route: 065
  5. CALCITONIN, HUMAN [Concomitant]
     Route: 058
  6. 1ALPHA-HYDROXYVITAMIN D3 [Suspect]
     Active Substance: ALFACALCIDOL
     Dosage: TWICE OR THRICE WEEKLY
     Route: 065
  7. DENOSUMAB [Concomitant]
     Active Substance: DENOSUMAB

REACTIONS (2)
  - Deafness [Unknown]
  - Extraskeletal ossification [Unknown]
